FAERS Safety Report 6296342-8 (Version None)
Quarter: 2009Q3

REPORT INFORMATION
  Report Type: 
  Country: None (occurrence: None)
  Receive Date: 20090804
  Receipt Date: 20090723
  Transmission Date: 20100115
  Serious: Yes (Hospitalization)
  Sender: FDA-Public Use
  Company Number: PHHY2009CA15562

PATIENT
  Sex: Male
  Weight: 70 kg

DRUGS (1)
  1. EXJADE [Suspect]
     Indication: MYELODYSPLASTIC SYNDROME
     Dosage: 1250 MG, UNK
     Route: 048
     Dates: start: 20080701

REACTIONS (2)
  - BACTERIAL INFECTION [None]
  - HAEMORRHAGE [None]
